FAERS Safety Report 13629642 (Version 2)
Quarter: 2017Q2

REPORT INFORMATION
  Report Type: Report from Study
  Country: US (occurrence: US)
  Receive Date: 20170608
  Receipt Date: 20170612
  Transmission Date: 20170830
  Serious: Yes (Hospitalization)
  Sender: FDA-Public Use
  Company Number: US-BAYER-2017-082057

PATIENT
  Age: 67 Year
  Sex: Male

DRUGS (2)
  1. XOFIGO [Suspect]
     Active Substance: RADIUM RA-223 DICHLORIDE
     Indication: METASTASES TO BONE
  2. XOFIGO [Suspect]
     Active Substance: RADIUM RA-223 DICHLORIDE
     Indication: PROSTATE CANCER STAGE IV
     Dosage: 92.80 ?CI, Q1MON (ONCE EVERY 28 DAYS)
     Route: 042
     Dates: start: 20170417

REACTIONS (8)
  - Vomiting [None]
  - Asthenia [None]
  - Platelet count decreased [None]
  - Hypokalaemia [None]
  - Nausea [None]
  - Anaemia [None]
  - Pancytopenia [None]
  - Febrile neutropenia [None]

NARRATIVE: CASE EVENT DATE: 201704
